FAERS Safety Report 8262765 (Version 4)
Quarter: 2013Q3

REPORT INFORMATION
  Report Type: Report from Study
  Country: FR (occurrence: FR)
  Receive Date: 20111124
  Receipt Date: 20130724
  Transmission Date: 20140515
  Serious: Yes (Hospitalization)
  Sender: FDA-Public Use
  Company Number: FR-ROCHE-1012777

PATIENT
  Sex: Male

DRUGS (1)
  1. RITUXIMAB [Suspect]
     Indication: B-CELL LYMPHOMA
     Dosage: 375 MG/ML
     Route: 042
     Dates: start: 20070212, end: 20090105

REACTIONS (3)
  - Prostate cancer [Recovered/Resolved]
  - Radiation proctitis [Unknown]
  - Large intestine polyp [Unknown]
